FAERS Safety Report 20195390 (Version 1)
Quarter: 2021Q4

REPORT INFORMATION
  Report Type: Spontaneous
  Country: US (occurrence: US)
  Receive Date: 20211216
  Receipt Date: 20211216
  Transmission Date: 20220303
  Serious: No
  Sender: FDA-Public Use
  Company Number: USA--2021-US-000522

PATIENT
  Age: 69 Year
  Sex: Male

DRUGS (1)
  1. PILOCARPINE HYDROCHLORIDE [Suspect]
     Active Substance: PILOCARPINE HYDROCHLORIDE
     Dates: start: 20210830, end: 20210902

REACTIONS (2)
  - Drug ineffective [Unknown]
  - Condition aggravated [Unknown]

NARRATIVE: CASE EVENT DATE: 20210830
